FAERS Safety Report 20920944 (Version 1)
Quarter: 2022Q2

REPORT INFORMATION
  Report Type: Spontaneous
  Country: FR (occurrence: FR)
  Receive Date: 20220606
  Receipt Date: 20220606
  Transmission Date: 20220720
  Serious: Yes (Life-Threatening, Other)
  Sender: FDA-Public Use
  Company Number: None

PATIENT
  Age: 58 Year
  Sex: Female
  Weight: 50 kg

DRUGS (4)
  1. VENLAFAXINE HCL [Suspect]
     Active Substance: VENLAFAXINE HYDROCHLORIDE
     Dosage: 1500 MG
     Dates: start: 20220107
  2. LIBRAX [Suspect]
     Active Substance: CHLORDIAZEPOXIDE HYDROCHLORIDE\CLIDINIUM BROMIDE
     Dosage: 75/150 MG
     Dates: start: 20220107
  3. VALIUM [Suspect]
     Active Substance: DIAZEPAM
     Dosage: 15 MG
     Dates: start: 20220107
  4. TRAMADOL [Suspect]
     Active Substance: TRAMADOL
     Dosage: 4000 MG
     Dates: start: 20220107

REACTIONS (3)
  - Coma [Recovered/Resolved]
  - Tachycardia [Recovered/Resolved]
  - Poisoning deliberate [Recovered/Resolved]

NARRATIVE: CASE EVENT DATE: 20220107
